FAERS Safety Report 4858403-7 (Version None)
Quarter: 2005Q4

REPORT INFORMATION
  Report Type: 
  Country: None (occurrence: None)
  Receive Date: 20051219
  Receipt Date: 20050804
  Transmission Date: 20060501
  Serious: No
  Sender: FDA-Public Use
  Company Number: US-GLAXOSMITHKLINE-A0568943A

PATIENT
  Age: 25 Year
  Sex: Female

DRUGS (1)
  1. NICODERM CQ [Suspect]
     Dates: start: 20050801, end: 20050804

REACTIONS (7)
  - APPLICATION SITE SWELLING [None]
  - ASTHENIA [None]
  - DIZZINESS [None]
  - FEELING COLD [None]
  - NAUSEA [None]
  - NICOTINE DEPENDENCE [None]
  - RASH PAPULAR [None]
